FAERS Safety Report 21955771 (Version 1)
Quarter: 2023Q1

REPORT INFORMATION
  Report Type: Other
  Country: JP (occurrence: JP)
  Receive Date: 20230206
  Receipt Date: 20230206
  Transmission Date: 20230417
  Serious: Yes (Other)
  Sender: FDA-Public Use
  Company Number: JP-CHUGAI-2023003072

PATIENT
  Age: 46 Year
  Sex: Male
  Weight: 72 kg

DRUGS (3)
  1. AVASTIN [Suspect]
     Active Substance: BEVACIZUMAB
     Indication: Anal cancer
     Route: 041
     Dates: start: 202103, end: 202111
  2. XELODA [Suspect]
     Active Substance: CAPECITABINE
     Indication: Anal cancer
     Route: 048
     Dates: start: 202103, end: 202111
  3. OXALIPLATIN [Concomitant]
     Active Substance: OXALIPLATIN
     Indication: Anal cancer
     Route: 041
     Dates: start: 202103, end: 202111

REACTIONS (4)
  - Urinary retention [Unknown]
  - Ureteric stenosis [Unknown]
  - Ileus paralytic [Unknown]
  - Off label use [Unknown]

NARRATIVE: CASE EVENT DATE: 20211101
